FAERS Safety Report 13360219 (Version 1)
Quarter: 2017Q1

REPORT INFORMATION
  Report Type: Spontaneous
  Country: US (occurrence: US)
  Receive Date: 20170322
  Receipt Date: 20170322
  Transmission Date: 20170429
  Serious: No
  Sender: FDA-Public Use
  Company Number: US-PFIZER INC-2017119460

PATIENT
  Age: 41 Year
  Sex: Female
  Weight: 118 kg

DRUGS (3)
  1. LYRICA [Suspect]
     Active Substance: PREGABALIN
     Indication: DIABETIC NEUROPATHY
     Dosage: 400 MG, DAILY (ONE IN THE MORNING, 2 MID DAY, AND ONE IN THE EVENING BEFORE BED)
     Route: 048
     Dates: start: 201610, end: 20170306
  2. METFORMIN [Concomitant]
     Active Substance: METFORMIN HYDROCHLORIDE
     Indication: DIABETES MELLITUS
     Dosage: UNK
  3. EFFEXOR [Concomitant]
     Active Substance: VENLAFAXINE HYDROCHLORIDE
     Indication: MIGRAINE
     Dosage: 150 MG, DAILY

REACTIONS (9)
  - Pain in extremity [Recovering/Resolving]
  - Burning sensation [Unknown]
  - Depression [Recovering/Resolving]
  - Hypoaesthesia [Unknown]
  - Withdrawal syndrome [Unknown]
  - Diarrhoea [Unknown]
  - Panic attack [Recovered/Resolved]
  - Restless legs syndrome [Unknown]
  - Insomnia [Not Recovered/Not Resolved]

NARRATIVE: CASE EVENT DATE: 20170308
